FAERS Safety Report 8072801-2 (Version None)
Quarter: 2012Q1

REPORT INFORMATION
  Report Type: 
  Country: None (occurrence: None)
  Receive Date: 20120126
  Receipt Date: 20111219
  Transmission Date: 20120608
  Serious: Yes (Other)
  Sender: FDA-Public Use
  Company Number: CA-JNJFOC-20111211245

PATIENT
  Sex: Male
  Weight: 59.3 kg

DRUGS (3)
  1. ALL OTHER THERAPEUTICS [Concomitant]
     Indication: PREMEDICATION
     Route: 048
  2. ACETAMINOPHEN [Concomitant]
     Indication: PREMEDICATION
     Route: 065
  3. REMICADE [Suspect]
     Indication: COLITIS ULCERATIVE
     Route: 042
     Dates: start: 20110411

REACTIONS (1)
  - GINGIVAL GRAFT [None]
